FAERS Safety Report 8192208-7 (Version None)
Quarter: 2012Q1

REPORT INFORMATION
  Report Type: 
  Country: None (occurrence: None)
  Receive Date: 20120307
  Receipt Date: 20120302
  Transmission Date: 20120608
  Serious: Yes (Other)
  Sender: FDA-Public Use
  Company Number: US-PFIZER INC-2012020525

PATIENT
  Sex: Male
  Weight: 113 kg

DRUGS (14)
  1. LYRICA [Suspect]
     Dosage: 200 MG, QHS (EVERY NIGHT AT BEDTIME)
     Route: 048
     Dates: start: 20111202
  2. PERCOCET [Concomitant]
     Indication: PAIN
     Dosage: 100 MG, 3X/DAY
  3. LYRICA [Suspect]
     Indication: PAIN
     Dosage: 150 MG, DAILY
     Dates: end: 20120124
  4. TIZANIDINE [Concomitant]
     Indication: MUSCLE SPASMS
     Dosage: 4 MG, 3X/DAY
  5. METOPROLOL [Concomitant]
     Indication: HYPERTENSION
     Dosage: 100 MG, DAILY
  6. PLAVIX [Concomitant]
     Indication: ANTICOAGULANT THERAPY
     Dosage: 75 MG, DAILY
  7. LANSOPRAZOLE [Concomitant]
     Indication: GASTRIC DISORDER
     Dosage: 300 MG, DAILY
     Route: 048
  8. FENTANYL [Concomitant]
  9. LYRICA [Suspect]
     Indication: BACK PAIN
     Dosage: 50 MG, DAILY
     Dates: start: 20111101
  10. FENTANYL [Concomitant]
     Indication: PAIN
     Dosage: 25 MG, ONE PATCH IN EVERY 3 DAYS
     Dates: start: 20111109
  11. LYRICA [Suspect]
     Indication: PAIN IN EXTREMITY
     Dosage: 100 MG, DAILY
  12. DURAGESIC-100 [Concomitant]
     Dosage: 25 MG
  13. PRAVASTATIN [Concomitant]
     Indication: BLOOD CHOLESTEROL ABNORMAL
     Dosage: 40 MG, DAILY
  14. TOPAMAX [Concomitant]
     Indication: CONVULSION
     Dosage: 100 MG, 2X/DAY

REACTIONS (9)
  - CONCUSSION [None]
  - ROAD TRAFFIC ACCIDENT [None]
  - SEDATION [None]
  - DRUG INEFFECTIVE [None]
  - RIB FRACTURE [None]
  - PARAESTHESIA [None]
  - BACK PAIN [None]
  - INTENTIONAL DRUG MISUSE [None]
  - MUSCULOSKELETAL CHEST PAIN [None]
